FAERS Safety Report 16594801 (Version 1)
Quarter: 2019Q3

REPORT INFORMATION
  Report Type: Spontaneous
  Country: FR (occurrence: FR)
  Receive Date: 20190718
  Receipt Date: 20190718
  Transmission Date: 20191004
  Serious: Yes (Other)
  Sender: FDA-Public Use
  Company Number: FR-PFM-2019-08259

PATIENT

DRUGS (2)
  1. VINORELBINE TARTRATE. [Suspect]
     Active Substance: VINORELBINE TARTRATE
     Indication: LUNG ADENOCARCINOMA
     Dosage: 108 MG, EVERY 3 WEEKS
     Route: 041
     Dates: start: 20120329, end: 20120704
  2. CISPLATINE [Suspect]
     Active Substance: CISPLATIN
     Indication: LUNG ADENOCARCINOMA
     Dosage: 146 MG, EVERY 3 WEEKS
     Route: 041
     Dates: start: 20120329, end: 20120416

REACTIONS (1)
  - Tinnitus [Not Recovered/Not Resolved]

NARRATIVE: CASE EVENT DATE: 20120426
